FAERS Safety Report 13431225 (Version 1)
Quarter: 2017Q2

REPORT INFORMATION
  Report Type: Spontaneous
  Country: NO (occurrence: NO)
  Receive Date: 20170412
  Receipt Date: 20170412
  Transmission Date: 20170830
  Serious: Yes (Disabling)
  Sender: FDA-Public Use
  Company Number: NO-PFIZER INC-2017157715

PATIENT
  Age: 16 Year
  Sex: Female
  Weight: 63 kg

DRUGS (4)
  1. QUETIAPIN SANDOZ [Suspect]
     Active Substance: QUETIAPINE
     Dosage: 175 MG, DAILY
     Dates: start: 2015, end: 20151231
  2. ZOLOFT [Suspect]
     Active Substance: SERTRALINE HYDROCHLORIDE
     Indication: DEPRESSION
     Dosage: AT 100 MG OR 200 MG
     Dates: start: 20140901
  3. QUETIAPIN SANDOZ [Suspect]
     Active Substance: QUETIAPINE
     Indication: PSYCHOTIC DISORDER
     Dosage: STARTED WITH DOSES AT 300-400 MG
     Dates: start: 20150601, end: 2015
  4. ZOLOFT [Suspect]
     Active Substance: SERTRALINE HYDROCHLORIDE
     Dosage: 25 MG, DAILY

REACTIONS (1)
  - Hypersomnia [Not Recovered/Not Resolved]

NARRATIVE: CASE EVENT DATE: 20150601
